FAERS Safety Report 4307006-1 (Version None)
Quarter: 2004Q1

REPORT INFORMATION
  Report Type: 
  Country: None (occurrence: None)
  Receive Date: 20040225
  Receipt Date: 20040213
  Transmission Date: 20041129
  Serious: Yes (Hospitalization)
  Sender: FDA-Public Use
  Company Number: 200307918

PATIENT
  Age: 66 Year
  Sex: Male
  Weight: 74 kg

DRUGS (4)
  1. IMODIUM [Suspect]
     Indication: DIARRHOEA
     Dosage: ^ 4MG THEN 2 MG^ PO
     Route: 048
     Dates: start: 20031124, end: 20031125
  2. BERBERINE [Suspect]
     Indication: DIARRHOEA
     Dosage: 100 MG ^ 1 DAY^ PO
     Route: 048
     Dates: start: 20031122, end: 20031125
  3. THYROID GLAND TABLET [Concomitant]
  4. METHIMAZOLE [Concomitant]

REACTIONS (8)
  - ABDOMINAL DISTENSION [None]
  - ABDOMINAL PAIN [None]
  - BENIGN PROSTATIC HYPERPLASIA [None]
  - CHOLELITHIASIS [None]
  - DECREASED ACTIVITY [None]
  - DIARRHOEA [None]
  - HYDRONEPHROSIS [None]
  - INTESTINAL OBSTRUCTION [None]
